FAERS Safety Report 5132958-X (Version None)
Quarter: 2006Q4

REPORT INFORMATION
  Report Type: 
  Country: None (occurrence: None)
  Receive Date: 20061019
  Receipt Date: 20061019
  Transmission Date: 20070319
  Serious: No
  Sender: FDA-Public Use
  Company Number: None

PATIENT
  Age: 27 Year
  Sex: Female
  Weight: 65.7716 kg

DRUGS (10)
  1. TIZANIDINE HCL [Suspect]
     Indication: MUSCLE SPASMS
     Dosage: 4 MG 1X PO
     Route: 048
     Dates: start: 20061017, end: 20061017
  2. ENBREL [Concomitant]
  3. METHOTREXATE SODIUM [Concomitant]
  4. CELEBREX [Concomitant]
  5. WELLBUTRIN [Concomitant]
  6. FLEXERIL [Concomitant]
  7. LOESTRIN [Concomitant]
  8. CRYSTALLINE VIT B12 INJ [Concomitant]
  9. MAGNESIUM POTASSIUM [Concomitant]
  10. FLINSTONE VITAMINS [Concomitant]

REACTIONS (5)
  - COLD SWEAT [None]
  - DIZZINESS [None]
  - PALLOR [None]
  - SOMNOLENCE [None]
  - VISION BLURRED [None]
